FAERS Safety Report 5041932-3 (Version None)
Quarter: 2006Q2

REPORT INFORMATION
  Report Type: 
  Country: None (occurrence: None)
  Receive Date: 20060630
  Receipt Date: 20060623
  Transmission Date: 20061013
  Serious: Yes (Hospitalization)
  Sender: FDA-Public Use
  Company Number: 236361K05USA

PATIENT
  Age: 62 Year
  Sex: Female

DRUGS (4)
  1. REBIF [Suspect]
     Indication: MULTIPLE SCLEROSIS
     Dosage: 44 MCG, 3 IN 1 WEEKS, SUBCUTANEOUS
     Route: 058
     Dates: start: 20051027
  2. BACLOFEN [Concomitant]
  3. METOPROLOL TARTRATE [Concomitant]
  4. LISINOPRIL [Concomitant]

REACTIONS (13)
  - ABASIA [None]
  - ABDOMINAL WALL CYST [None]
  - BLOOD PRESSURE INCREASED [None]
  - CARDIAC DISORDER [None]
  - CEREBROVASCULAR ACCIDENT [None]
  - CYSTITIS [None]
  - DEHYDRATION [None]
  - ENTEROCOLITIS INFECTIOUS [None]
  - LOSS OF CONSCIOUSNESS [None]
  - MALAISE [None]
  - MOBILITY DECREASED [None]
  - MONOPLEGIA [None]
  - RENAL DISORDER [None]
